FAERS Safety Report 4459917-4 (Version None)
Quarter: 2004Q3

REPORT INFORMATION
  Report Type: 
  Country: None (occurrence: None)
  Receive Date: 20040928
  Receipt Date: 20030904
  Transmission Date: 20050211
  Serious: No
  Sender: FDA-Public Use
  Company Number: US-GLAXOSMITHKLINE-A0424738A

PATIENT
  Age: 83 Year
  Sex: Male
  Weight: 89.1 kg

DRUGS (4)
  1. SEREVENT [Suspect]
     Indication: ASTHMA
     Dosage: 50MCG TWICE PER DAY
     Route: 055
     Dates: start: 20030601
  2. SINGULAIR [Concomitant]
  3. PLAVIX [Concomitant]
  4. PULMICORT [Concomitant]

REACTIONS (2)
  - PHARMACEUTICAL PRODUCT COMPLAINT [None]
  - TONGUE DISCOLOURATION [None]
